FAERS Safety Report 8184362-8 (Version None)
Quarter: 2012Q1

REPORT INFORMATION
  Report Type: 
  Country: None (occurrence: None)
  Receive Date: 20120305
  Receipt Date: 20120221
  Transmission Date: 20120608
  Serious: Yes (Other)
  Sender: FDA-Public Use
  Company Number: US-ELI_LILLY_AND_COMPANY-US201202006799

PATIENT
  Age: 57 Year
  Sex: Female

DRUGS (7)
  1. CYMBALTA [Suspect]
     Indication: FIBROMYALGIA
     Dosage: 30 MG, UNKNOWN
     Dates: start: 20110827
  2. ZOCOR [Concomitant]
  3. ELAVIL [Concomitant]
     Dosage: UNK
  4. NEXIUM [Concomitant]
  5. CYMBALTA [Suspect]
     Dosage: 60 MG, UNKNOWN
  6. DOLOBID [Concomitant]
  7. LISINOPRIL                              /USA/ [Concomitant]
     Dosage: UNK

REACTIONS (7)
  - SPINAL FUSION SURGERY [None]
  - TOE OPERATION [None]
  - NIGHT SWEATS [None]
  - FINGER REPAIR OPERATION [None]
  - JOINT ARTHROPLASTY [None]
  - HEADACHE [None]
  - INSOMNIA [None]
